FAERS Safety Report 10573145 (Version 1)
Quarter: 2014Q4

REPORT INFORMATION
  Report Type: Spontaneous
  Country: JP (occurrence: None)
  Receive Date: 20141106
  Receipt Date: 20141106
  Transmission Date: 20150529
  Serious: Yes (Other)
  Sender: FDA-Public Use
  Company Number: INT_00503_2014

PATIENT
  Sex: Female

DRUGS (2)
  1. CISPLATIN. [Suspect]
     Active Substance: CISPLATIN
     Indication: HEPATOCELLULAR CARCINOMA
     Dosage: DF
  2. UNSPECIFIED INGREDIENTS [Suspect]
     Active Substance: UNSPECIFIED INGREDIENT
     Indication: FLUID REPLACEMENT
     Dosage: DF

REACTIONS (3)
  - Altered state of consciousness [None]
  - Inappropriate antidiuretic hormone secretion [None]
  - Restlessness [None]
